FAERS Safety Report 10096755 (Version 2)
Quarter: 2014Q2

REPORT INFORMATION
  Report Type: Spontaneous
  Country: NL (occurrence: NL)
  Receive Date: 20140422
  Receipt Date: 20140422
  Transmission Date: 20141212
  Serious: Yes (Hospitalization)
  Sender: FDA-Public Use
  Company Number: PHHY2014NL041427

PATIENT
  Age: 77 Year
  Sex: Female

DRUGS (3)
  1. INDAPAMIDE/PERINDOPRIL [Suspect]
  2. METFORMIN [Concomitant]
     Dosage: 500 MG, QD
  3. ATORVASTATIN [Concomitant]
     Dosage: 40 MG, QD

REACTIONS (9)
  - Inappropriate antidiuretic hormone secretion [Unknown]
  - Hyponatraemia [Unknown]
  - Blood antidiuretic hormone increased [Unknown]
  - Fall [Unknown]
  - Malaise [Unknown]
  - Muscular weakness [Unknown]
  - Skin turgor decreased [Unknown]
  - Nausea [Unknown]
  - Vomiting [Unknown]
